FAERS Safety Report 17697431 (Version 1)
Quarter: 2020Q2

REPORT INFORMATION
  Report Type: Spontaneous
  Country: US (occurrence: US)
  Receive Date: 20200422
  Receipt Date: 20200422
  Transmission Date: 20200714
  Serious: Yes (Hospitalization)
  Sender: FDA-Public Use
  Company Number: None

PATIENT
  Age: 84 Year
  Sex: Male
  Weight: 87.75 kg

DRUGS (5)
  1. MEMANTINE. [Concomitant]
     Active Substance: MEMANTINE
  2. MELATONIN [Concomitant]
     Active Substance: MELATONIN
  3. TAMSULOSIN [Concomitant]
     Active Substance: TAMSULOSIN
  4. AMOXICILLIN CLAVULANIC ACID GENERIC FOR AUGMENTIN [Suspect]
     Active Substance: AMOXICILLIN\CLAVULANIC ACID
     Indication: LOCALISED INFECTION
     Route: 048
     Dates: start: 20200410, end: 20200410
  5. OLANZAPINE. [Concomitant]
     Active Substance: OLANZAPINE

REACTIONS (4)
  - Diarrhoea [None]
  - Fall [None]
  - Vomiting [None]
  - Heart rate increased [None]

NARRATIVE: CASE EVENT DATE: 20200411
